FAERS Safety Report 6317777-0 (Version None)
Quarter: 2009Q3

REPORT INFORMATION
  Report Type: 
  Country: None (occurrence: None)
  Receive Date: 20090821
  Receipt Date: 20090813
  Transmission Date: 20100115
  Serious: Yes (Other)
  Sender: FDA-Public Use
  Company Number: CA-JNJFOC-20090302516

PATIENT
  Sex: Male
  Weight: 83 kg

DRUGS (14)
  1. REMICADE [Suspect]
     Route: 042
  2. REMICADE [Suspect]
     Indication: RHEUMATOID ARTHRITIS
     Route: 042
  3. APO-FUROSEMIDE [Concomitant]
  4. ALENDRONATE SODIUM [Concomitant]
  5. FELODIPINE [Concomitant]
  6. ATACAND [Concomitant]
  7. FLOVENT [Concomitant]
  8. AZATHIOPRINE [Concomitant]
  9. HYDROCORTISONE CREAM [Concomitant]
  10. SALBUTAMOL [Concomitant]
  11. RENEDIL [Concomitant]
  12. ATROVENT [Concomitant]
  13. HYDROXYQUINE [Concomitant]
  14. PREDNISONE [Concomitant]

REACTIONS (2)
  - ASTHENIA [None]
  - BLOOD PRESSURE DECREASED [None]
